FAERS Safety Report 15439808 (Version 1)
Quarter: 2018Q3

REPORT INFORMATION
  Report Type: Spontaneous
  Country: RO (occurrence: RO)
  Receive Date: 20180928
  Receipt Date: 20180928
  Transmission Date: 20181010
  Serious: Yes (Other)
  Sender: FDA-Public Use
  Company Number: RO-BAUSCH-BL-2018-026488

PATIENT
  Age: 17 Year
  Sex: Male

DRUGS (1)
  1. LOCOID [Suspect]
     Active Substance: HYDROCORTISONE BUTYRATE
     Indication: PSORIASIS
     Route: 065

REACTIONS (1)
  - Cerebral venous thrombosis [Unknown]
